FAERS Safety Report 14379800 (Version 1)
Quarter: 2018Q1

REPORT INFORMATION
  Report Type: Spontaneous
  Country: US (occurrence: US)
  Receive Date: 20180111
  Receipt Date: 20180111
  Transmission Date: 20180509
  Serious: Yes (Death)
  Sender: FDA-Public Use
  Company Number: None

PATIENT
  Age: 80 Year
  Sex: Female

DRUGS (20)
  1. HYOSCYAMINE. [Concomitant]
     Active Substance: HYOSCYAMINE
  2. PROPRANOLOL [Concomitant]
     Active Substance: PROPRANOLOL HYDROCHLORIDE
  3. LATANOPROST. [Concomitant]
     Active Substance: LATANOPROST
  4. ALBUTEROL. [Concomitant]
     Active Substance: ALBUTEROL
  5. PULMOZYME [Suspect]
     Active Substance: DORNASE ALFA
     Indication: BRONCHITIS
     Route: 055
     Dates: end: 20180109
  6. ACETYLCYST [Concomitant]
  7. NYSTOP [Concomitant]
     Active Substance: NYSTATIN
  8. TOBRAMYCIN. [Concomitant]
     Active Substance: TOBRAMYCIN
  9. CITALOPRAM [Concomitant]
     Active Substance: CITALOPRAM HYDROBROMIDE
  10. LORAZEPAM. [Concomitant]
     Active Substance: LORAZEPAM
  11. HYDROCO/APAP [Concomitant]
     Active Substance: ACETAMINOPHEN\HYDROCODONE
  12. ESTRADIOL. [Concomitant]
     Active Substance: ESTRADIOL
  13. PULMOZYME [Concomitant]
     Active Substance: DORNASE ALFA
  14. LIDOCAINE. [Concomitant]
     Active Substance: LIDOCAINE
  15. CYANOCOBALAM [Concomitant]
  16. MORPHINE SUL SOL 100/5ML [Concomitant]
     Active Substance: MORPHINE SULFATE
  17. METHADONE [Concomitant]
     Active Substance: METHADONE HYDROCHLORIDE
  18. HALOPERIDOL. [Concomitant]
     Active Substance: HALOPERIDOL
  19. METHOCARBAM [Concomitant]
  20. ALPRAZOLAM. [Concomitant]
     Active Substance: ALPRAZOLAM

REACTIONS (1)
  - Death [None]

NARRATIVE: CASE EVENT DATE: 20180109
